FAERS Safety Report 9131176 (Version 3)
Quarter: 2013Q2

REPORT INFORMATION
  Report Type: Spontaneous
  Country: BR (occurrence: BR)
  Receive Date: 20130301
  Receipt Date: 20130415
  Transmission Date: 20140414
  Serious: Yes (Other)
  Sender: FDA-Public Use
  Company Number: BR-NOVOPROD-371603

PATIENT
  Age: 47 Year
  Sex: Female
  Weight: 56 kg

DRUGS (3)
  1. LEVEMIR FLEXPEN [Suspect]
     Indication: TYPE 2 DIABETES MELLITUS
     Dosage: 10 U SINGLE
     Route: 058
     Dates: start: 20130208
  2. LEVEMIR FLEXPEN [Suspect]
     Dosage: 10 U, ONCE A DAY IN THE MORNING
     Route: 058
  3. LEVEMIR FLEXPEN [Suspect]
     Dosage: 12 U, SINGLE
     Route: 058
     Dates: start: 20130326

REACTIONS (3)
  - Syncope [Recovered/Resolved]
  - Blood glucose increased [Recovered/Resolved]
  - Blood glucose fluctuation [Recovered/Resolved]
